FAERS Safety Report 9376978 (Version 1)
Quarter: 2013Q3

REPORT INFORMATION
  Report Type: Spontaneous
  Country: US (occurrence: US)
  Receive Date: 20130701
  Receipt Date: 20130701
  Transmission Date: 20140515
  Serious: Yes (Other)
  Sender: FDA-Public Use
  Company Number: PHEH2013US013867

PATIENT
  Sex: Female

DRUGS (6)
  1. AFINITOR [Suspect]
     Indication: BREAST CANCER
     Dosage: 10 MG, QD
     Route: 048
     Dates: start: 20120830, end: 20130307
  2. EXEMESTANE [Concomitant]
  3. ASPIRIN [Concomitant]
  4. BYSTOLIC [Concomitant]
  5. CENTRUM [Concomitant]
  6. FEMARA [Concomitant]

REACTIONS (1)
  - Cerebrovascular accident [Recovered/Resolved]
